FAERS Safety Report 6196908-X (Version None)
Quarter: 2009Q2

REPORT INFORMATION
  Report Type: 
  Country: None (occurrence: None)
  Receive Date: 20090520
  Receipt Date: 20090515
  Transmission Date: 20091009
  Serious: Yes (Other)
  Sender: FDA-Public Use
  Company Number: US-BAYER-200911506BCC

PATIENT
  Age: 71 Year
  Sex: Female

DRUGS (2)
  1. ASPIRIN [Suspect]
     Indication: DRUG USE FOR UNKNOWN INDICATION
  2. FOSAMAX [Concomitant]
     Dates: start: 19950101

REACTIONS (2)
  - GASTRITIS [None]
  - GASTRITIS EROSIVE [None]
